FAERS Safety Report 5720827-3 (Version None)
Quarter: 2008Q2

REPORT INFORMATION
  Report Type: 
  Country: None (occurrence: None)
  Receive Date: 20080425
  Receipt Date: 20080425
  Transmission Date: 20081010
  Serious: Yes (Other)
  Sender: FDA-Public Use
  Company Number: None

PATIENT
  Age: 34 Year
  Sex: Female
  Weight: 58.9676 kg

DRUGS (1)
  1. AMITIZA [Suspect]
     Indication: CONSTIPATION
     Dosage: 24 MCG 2 TIMES DAILY PO
     Route: 048
     Dates: start: 20080324, end: 20080414

REACTIONS (5)
  - ANXIETY [None]
  - BODY TEMPERATURE INCREASED [None]
  - DYSPNOEA [None]
  - HOT FLUSH [None]
  - PANIC ATTACK [None]
